FAERS Safety Report 15166763 (Version 1)
Quarter: 2018Q3

REPORT INFORMATION
  Report Type: Spontaneous
  Country: US (occurrence: US)
  Receive Date: 20180719
  Receipt Date: 20180719
  Transmission Date: 20181010
  Serious: No
  Sender: FDA-Public Use
  Company Number: US-SHIRE-US201826203

PATIENT
  Sex: Female
  Weight: 54.42 kg

DRUGS (2)
  1. LIALDA [Suspect]
     Active Substance: MESALAMINE
     Indication: OFF LABEL USE
  2. LIALDA [Suspect]
     Active Substance: MESALAMINE
     Indication: COELIAC DISEASE
     Dosage: UNK, 2X/DAY:BID
     Route: 048

REACTIONS (6)
  - Gastrointestinal disorder [Not Recovered/Not Resolved]
  - Feeling abnormal [Not Recovered/Not Resolved]
  - Condition aggravated [Not Recovered/Not Resolved]
  - Abdominal distension [Not Recovered/Not Resolved]
  - Abdominal pain [Not Recovered/Not Resolved]
  - Off label use [Not Recovered/Not Resolved]
